FAERS Safety Report 11515307 (Version 1)
Quarter: 2015Q3

REPORT INFORMATION
  Report Type: Spontaneous
  Country: US (occurrence: US)
  Receive Date: 20150916
  Receipt Date: 20150916
  Transmission Date: 20151125
  Serious: No
  Sender: FDA-Public Use
  Company Number: US-TEVA-593292USA

PATIENT
  Age: 68 Year
  Sex: Male
  Weight: 70.37 kg

DRUGS (3)
  1. NUVIGIL [Suspect]
     Active Substance: ARMODAFINIL
     Indication: FATIGUE
  2. NUVIGIL [Suspect]
     Active Substance: ARMODAFINIL
     Dosage: CUT THE TABLETS IN-HALF
  3. ASPIRIN. [Concomitant]
     Active Substance: ASPIRIN

REACTIONS (2)
  - Insomnia [Unknown]
  - Intentional product misuse [Unknown]
